FAERS Safety Report 4456446-9 (Version None)
Quarter: 2004Q3

REPORT INFORMATION
  Report Type: 
  Country: None (occurrence: None)
  Receive Date: 20040830
  Receipt Date: 20040517
  Transmission Date: 20050211
  Serious: No
  Sender: FDA-Public Use
  Company Number: 206583

PATIENT
  Age: 29 Year
  Sex: Female
  Weight: 56.8 kg

DRUGS (6)
  1. XOLAIR [Suspect]
     Indication: ASTHMA
     Dosage: 150 MG, Q4W, SUBCUTANEOUS
     Route: 058
     Dates: start: 20040223, end: 20040419
  2. ADVAIR DISKUS [Concomitant]
  3. ACCOLATE [Concomitant]
  4. FORADIL [Concomitant]
  5. PROVENTIL (ALBUTEROL SULFATE, ALBUTEROL) [Concomitant]
  6. ALLEGRA [Concomitant]

REACTIONS (1)
  - WHEEZING [None]
